FAERS Safety Report 14393424 (Version 2)
Quarter: 2018Q1

REPORT INFORMATION
  Report Type: Spontaneous
  Country: CH (occurrence: CH)
  Receive Date: 20180116
  Receipt Date: 20180208
  Transmission Date: 20180509
  Serious: Yes (Hospitalization)
  Sender: FDA-Public Use
  Company Number: CH-BAYER-2018-005683

PATIENT
  Sex: Male
  Weight: 58 kg

DRUGS (2)
  1. XOFIGO [Suspect]
     Active Substance: RADIUM RA-223 DICHLORIDE
     Indication: METASTASES TO BONE
     Dosage: DAILY DOSE 3.4 MBQ
     Route: 042
     Dates: start: 20171215, end: 20171215
  2. XOFIGO [Suspect]
     Active Substance: RADIUM RA-223 DICHLORIDE
     Indication: PROSTATE CANCER
     Dosage: DAILY DOSE 3.4 MBQ
     Route: 042
     Dates: start: 20171117, end: 20171117

REACTIONS (2)
  - Dyspepsia [None]
  - Asthenia [None]
